FAERS Safety Report 10704737 (Version 1)
Quarter: 2015Q1

REPORT INFORMATION
  Report Type: Spontaneous
  Country: US (occurrence: US)
  Receive Date: 20150112
  Receipt Date: 20150112
  Transmission Date: 20150721
  Serious: No
  Sender: FDA-Public Use
  Company Number: US-BRISTOL-MYERS SQUIBB COMPANY-BMS-2014-005909

PATIENT
  Sex: Male

DRUGS (3)
  1. BYETTA [Suspect]
     Active Substance: EXENATIDE
     Indication: DIABETES MELLITUS
     Dosage: 10 MCG, BID
     Route: 058
     Dates: start: 20140806
  2. HYDROCODONE [Concomitant]
     Active Substance: HYDROCODONE
     Indication: PRODUCT USED FOR UNKNOWN INDICATION
     Route: 065
  3. BYETTA [Suspect]
     Active Substance: EXENATIDE
     Dosage: 5 MCG, BID
     Route: 058

REACTIONS (2)
  - Hypoglycaemia [Unknown]
  - Dizziness [Unknown]
